FAERS Safety Report 23787746 (Version 1)
Quarter: 2024Q2

REPORT INFORMATION
  Report Type: Spontaneous
  Country: CN (occurrence: CN)
  Receive Date: 20240426
  Receipt Date: 20240426
  Transmission Date: 20240716
  Serious: Yes (Death, Hospitalization, Other)
  Sender: FDA-Public Use
  Company Number: CN-SA-2024SA124383

PATIENT
  Age: 76 Year
  Sex: Female

DRUGS (7)
  1. CLOPIDOGREL BISULFATE [Suspect]
     Active Substance: CLOPIDOGREL BISULFATE
     Dosage: UNK
  2. VALPROATE SODIUM [Suspect]
     Active Substance: VALPROATE SODIUM
     Dosage: UNK
  3. TIGECYCLINE [Suspect]
     Active Substance: TIGECYCLINE
     Indication: Acinetobacter infection
     Dosage: 100 MG, Q12H
  4. TIGECYCLINE [Suspect]
     Active Substance: TIGECYCLINE
     Indication: Pneumonia
     Dosage: 50 MG, Q12H (REDUCED)
  5. CEFOPERAZONE\SULBACTAM SODIUM [Suspect]
     Active Substance: CEFOPERAZONE\SULBACTAM SODIUM
     Indication: Acinetobacter infection
     Dosage: 3 G, Q8H (1:1)
  6. CEFOPERAZONE\SULBACTAM SODIUM [Suspect]
     Active Substance: CEFOPERAZONE\SULBACTAM SODIUM
     Indication: Pneumonia
  7. ESOMEPRAZOLE [Concomitant]
     Active Substance: ESOMEPRAZOLE

REACTIONS (14)
  - Acute hepatic failure [Fatal]
  - Circulatory collapse [Fatal]
  - Pneumonia [Fatal]
  - Hyperkalaemia [Fatal]
  - Cardiac arrest [Fatal]
  - Multiple organ dysfunction syndrome [Fatal]
  - Metabolic acidosis [Fatal]
  - Cholestasis [Unknown]
  - Jaundice [Unknown]
  - Yellow skin [Unknown]
  - Chromaturia [Unknown]
  - Condition aggravated [Unknown]
  - Drug-induced liver injury [Unknown]
  - Mouth haemorrhage [Recovered/Resolved]
